FAERS Safety Report 10023582 (Version 1)
Quarter: 2014Q1

REPORT INFORMATION
  Report Type: Spontaneous
  Country: BR (occurrence: BR)
  Receive Date: 20140320
  Receipt Date: 20140320
  Transmission Date: 20141002
  Serious: Yes (Hospitalization, Other)
  Sender: FDA-Public Use
  Company Number: BR-JNJFOC-20140309062

PATIENT
  Sex: Male

DRUGS (3)
  1. REMICADE [Suspect]
     Indication: CROHN^S DISEASE
     Route: 042
     Dates: start: 20140131
  2. REMICADE [Suspect]
     Indication: CROHN^S DISEASE
     Route: 042
     Dates: start: 2009
  3. AZATHIOPRINE [Concomitant]
     Indication: CROHN^S DISEASE
     Route: 065
     Dates: start: 2007

REACTIONS (5)
  - Intestinal stenosis [Not Recovered/Not Resolved]
  - Weight decreased [Recovered/Resolved]
  - Hypertension [Recovered/Resolved]
  - Crohn^s disease [Recovered/Resolved]
  - Drug hypersensitivity [Recovered/Resolved]
